FAERS Safety Report 10473298 (Version 1)
Quarter: 2014Q3

REPORT INFORMATION
  Report Type: Spontaneous
  Country: IT (occurrence: IT)
  Receive Date: 20140924
  Receipt Date: 20140924
  Transmission Date: 20150326
  Serious: Yes (Hospitalization)
  Sender: FDA-Public Use
  Company Number: IT-IPSEN BIOPHARMACEUTICALS, INC.-2014-5035

PATIENT

DRUGS (3)
  1. ANTI-DIABETIC THERAPY [Concomitant]
     Indication: DIABETES MELLITUS
     Dosage: NOT REPORTED
     Route: 065
  2. DYSPORT [Suspect]
     Active Substance: ABOBOTULINUMTOXINA
     Indication: MUSCLE SPASTICITY
     Dosage: NOT REPORTED
     Route: 065
  3. ANTI-HYPERTENSION THERAPY [Concomitant]
     Indication: HYPERTENSION
     Dosage: NOT REPORTED
     Route: 065

REACTIONS (1)
  - Vomiting [Recovered/Resolved]
